FAERS Safety Report 19777133 (Version 1)
Quarter: 2021Q3

REPORT INFORMATION
  Report Type: Report from Study
  Country: None (occurrence: BR)
  Receive Date: 20210902
  Receipt Date: 20210902
  Transmission Date: 20211014
  Serious: Yes (Disabling, Other)
  Sender: FDA-Public Use
  Company Number: BR-ABBVIE-21K-020-4058938-00

PATIENT
  Age: 29 Year
  Sex: Male
  Weight: 69 kg

DRUGS (2)
  1. HUMIRA [Suspect]
     Active Substance: ADALIMUMAB
     Indication: ANKYLOSING SPONDYLITIS
     Route: 058
     Dates: start: 20120101
  2. HUMIRA [Suspect]
     Active Substance: ADALIMUMAB
     Route: 058
     Dates: end: 201811

REACTIONS (26)
  - Kyphosis [Recovering/Resolving]
  - Anosmia [Recovering/Resolving]
  - Drug hypersensitivity [Recovered/Resolved]
  - Body height decreased [Recovering/Resolving]
  - Product storage error [Unknown]
  - Spondylitis [Unknown]
  - Gastritis [Recovering/Resolving]
  - Lactose intolerance [Recovering/Resolving]
  - Sensory disturbance [Recovering/Resolving]
  - Hypertension [Recovered/Resolved]
  - Back pain [Unknown]
  - Helicobacter gastritis [Recovering/Resolving]
  - Diarrhoea [Recovered/Resolved]
  - Anxiety [Recovering/Resolving]
  - Diarrhoea [Recovering/Resolving]
  - Dyspnoea [Recovering/Resolving]
  - Product administration error [Unknown]
  - Spinal deformity [Recovering/Resolving]
  - Ocular hyperaemia [Recovered/Resolved]
  - Heart rate increased [Recovered/Resolved]
  - Ageusia [Recovering/Resolving]
  - Dyspnoea [Recovered/Resolved]
  - Conjunctivitis [Recovered/Resolved]
  - Spinal pain [Recovering/Resolving]
  - Sensory disturbance [Unknown]
  - Erythema [Recovered/Resolved]

NARRATIVE: CASE EVENT DATE: 201810
